FAERS Safety Report 15277084 (Version 1)
Quarter: 2018Q3

REPORT INFORMATION
  Report Type: Spontaneous
  Country: US (occurrence: US)
  Receive Date: 20180814
  Receipt Date: 20180814
  Transmission Date: 20181010
  Serious: Yes (Hospitalization, Other)
  Sender: FDA-Public Use
  Company Number: US-SA-2018SA206646

PATIENT
  Age: 64 Year
  Sex: Female

DRUGS (5)
  1. FLUOCINONIDE. [Interacting]
     Active Substance: FLUOCINONIDE
     Indication: ECZEMA
     Dosage: UNK, BID
     Route: 061
  2. TRIAMCINOLONE ACETONIDE. [Suspect]
     Active Substance: TRIAMCINOLONE ACETONIDE
     Indication: ECZEMA
     Dosage: UNK, BID
     Route: 061
  3. KETOCONAZOLE. [Interacting]
     Active Substance: KETOCONAZOLE
     Indication: ECZEMA
     Dosage: UNK
     Route: 061
  4. ECONAZOLE NITRATE. [Interacting]
     Active Substance: ECONAZOLE NITRATE
     Indication: ECZEMA
     Dosage: UNK
     Route: 061
  5. CLOBETASOL [Interacting]
     Active Substance: CLOBETASOL
     Indication: ECZEMA
     Dosage: UNK, QW
     Route: 061

REACTIONS (11)
  - Blood potassium increased [Recovering/Resolving]
  - Withdrawal syndrome [Recovering/Resolving]
  - Rash erythematous [Recovering/Resolving]
  - Cortisol decreased [Recovering/Resolving]
  - Confusional state [Recovering/Resolving]
  - Hyponatraemia [Recovering/Resolving]
  - Hypotension [Recovering/Resolving]
  - Rash [Recovering/Resolving]
  - Drug interaction [Unknown]
  - Hypothalamic pituitary adrenal axis suppression [Recovering/Resolving]
  - Adrenal insufficiency [Recovering/Resolving]
